FAERS Safety Report 4469327-1 (Version None)
Quarter: 2004Q4

REPORT INFORMATION
  Report Type: 
  Country: None (occurrence: None)
  Receive Date: 20041008
  Receipt Date: 20031215
  Transmission Date: 20050328
  Serious: Yes (Other)
  Sender: FDA-Public Use
  Company Number: US-BRISTOL-MYERS SQUIBB COMPANY-12457750

PATIENT
  Age: 78 Year
  Sex: Female
  Weight: 119 kg

DRUGS (3)
  1. AVAPRO [Suspect]
     Indication: HYPERTENSION
     Dosage: STARTED 300MG TABS, CUT IN HALF IN JUL-2003.
     Route: 048
     Dates: start: 20030701
  2. BEXTRA [Suspect]
     Dosage: TAKEN ON 12/9, 12/10, + 12/11/03.
     Dates: start: 20031209, end: 20031211
  3. XANAX [Concomitant]

REACTIONS (5)
  - DIZZINESS [None]
  - DYSPNOEA [None]
  - GASTROINTESTINAL DISORDER [None]
  - OEDEMA PERIPHERAL [None]
  - SWELLING FACE [None]
